APPROVED DRUG PRODUCT: TRIFLUOPERAZINE HYDROCHLORIDE
Active Ingredient: TRIFLUOPERAZINE HYDROCHLORIDE
Strength: EQ 10MG BASE
Dosage Form/Route: TABLET;ORAL
Application: A040209 | Product #004 | TE Code: AB
Applicant: MYLAN PHARMACEUTICALS INC
Approved: Jul 7, 1997 | RLD: No | RS: Yes | Type: RX